FAERS Safety Report 22518790 (Version 1)
Quarter: 2023Q2

REPORT INFORMATION
  Report Type: Spontaneous
  Country: US (occurrence: US)
  Receive Date: 20230605
  Receipt Date: 20230605
  Transmission Date: 20230722
  Serious: Yes (Other)
  Sender: FDA-Public Use
  Company Number: US-EyePoint Pharmaceuticals, Inc.-US-EYP-23-00188

PATIENT

DRUGS (2)
  1. DEXYCU [Suspect]
     Active Substance: DEXAMETHASONE
     Indication: Post procedural inflammation
     Dosage: ADMINISTERED UNDER THE IRIS
     Route: 031
  2. DEXYCU [Suspect]
     Active Substance: DEXAMETHASONE

REACTIONS (1)
  - Iris atrophy [Unknown]
